FAERS Safety Report 5258476-6 (Version None)
Quarter: 2007Q1

REPORT INFORMATION
  Report Type: 
  Country: None (occurrence: None)
  Receive Date: 20070308
  Receipt Date: 20070226
  Transmission Date: 20070707
  Serious: Yes (Hospitalization, Other)
  Sender: FDA-Public Use
  Company Number: PHRM2007FR00883

PATIENT
  Age: 75 Year
  Sex: Male
  Weight: 68 kg

DRUGS (11)
  1. ZOMETA [Suspect]
     Indication: MULTIPLE MYELOMA
     Dosage: 4 MG, QMO
     Route: 042
     Dates: start: 20041115, end: 20060315
  2. COUMADIN [Concomitant]
  3. PLAVIX [Concomitant]
  4. TRAMADOL HCL [Concomitant]
  5. TENORMIN [Concomitant]
  6. ALDACTONE [Concomitant]
  7. FOZITEC [Concomitant]
  8. LEVOTHYROXINE SODIUM [Concomitant]
  9. THALIDOMIDE [Concomitant]
  10. MOPRAL [Concomitant]
  11. TRINITRINE [Concomitant]

REACTIONS (8)
  - ANGINA PECTORIS [None]
  - BONE DISORDER [None]
  - IMPAIRED HEALING [None]
  - MANDIBULAR PROSTHESIS USER [None]
  - OSTEONECROSIS [None]
  - PRIMARY SEQUESTRUM [None]
  - TOOTH EXTRACTION [None]
  - WOUND DEBRIDEMENT [None]
